FAERS Safety Report 22705040 (Version 2)
Quarter: 2023Q4

REPORT INFORMATION
  Report Type: Report from Study
  Country: US (occurrence: US)
  Receive Date: 20230714
  Receipt Date: 20231022
  Transmission Date: 20240110
  Serious: Yes (Other)
  Sender: FDA-Public Use
  Company Number: US-002147023-NVSC2023US155127

PATIENT
  Sex: Male

DRUGS (1)
  1. ENTRESTO [Suspect]
     Active Substance: SACUBITRIL\VALSARTAN
     Indication: Product used for unknown indication
     Dosage: 1 DOSAGE FORM, BID
     Route: 065

REACTIONS (4)
  - Coronary artery occlusion [Unknown]
  - Dyspepsia [Unknown]
  - Cough [Unknown]
  - Sinus disorder [Unknown]
